FAERS Safety Report 8718959 (Version 2)
Quarter: 2012Q4

REPORT INFORMATION
  Report Type: 
  Country: US (occurrence: US)
  Receive Date: 20120811
  Receipt Date: 20120919
  Transmission Date: 20130627
  Serious: No
  Sender: FDA-Public Use
  Company Number: US-009507513-1208USA003077

PATIENT
  Age: 25 Year
  Sex: Female
  Weight: 119.73 kg

DRUGS (3)
  1. NEXPLANON [Suspect]
     Indication: CONTRACEPTION
     Dosage: 68 mg, 3 years implant
     Route: 059
     Dates: start: 20120615, end: 20120615
  2. NEXPLANON [Suspect]
     Dosage: 68 mg, 3 years implant
     Route: 059
     Dates: start: 20120615
  3. CELEXA [Concomitant]
     Dosage: UNK

REACTIONS (3)
  - Medical device complication [Unknown]
  - Device expulsion [Unknown]
  - No adverse event [Unknown]
